FAERS Safety Report 5542048-X (Version None)
Quarter: 2007Q4

REPORT INFORMATION
  Report Type: 
  Country: None (occurrence: None)
  Receive Date: 20071210
  Receipt Date: 20071205
  Transmission Date: 20080405
  Serious: Yes (Hospitalization)
  Sender: FDA-Public Use
  Company Number: PHNR2007AU02159

PATIENT
  Age: 28 Year
  Sex: Male

DRUGS (4)
  1. EXJADE [Suspect]
     Dosage: 1500MG DAILY
     Route: 048
     Dates: start: 20070612, end: 20070622
  2. FOSAMAX ONCE WEEKLY [Concomitant]
     Indication: OSTEOPOROSIS
     Dosage: 70 MG, QW
     Route: 048
     Dates: start: 20070503
  3. ACETAMINOPHEN W/ CODEINE [Concomitant]
     Indication: PAIN
     Dosage: 2 TABLETS WEEKLY
     Route: 048
  4. ENDEP [Concomitant]
     Indication: DEPRESSION
     Dosage: 10MG DAILY
     Route: 048
     Dates: start: 20070609

REACTIONS (8)
  - ABDOMINAL PAIN [None]
  - BACK PAIN [None]
  - BLOOD AMYLASE INCREASED [None]
  - BODY TEMPERATURE INCREASED [None]
  - DIARRHOEA [None]
  - LIPASE INCREASED [None]
  - PANCREATITIS ACUTE [None]
  - WHITE BLOOD CELL COUNT INCREASED [None]
